FAERS Safety Report 26167446 (Version 1)
Quarter: 2025Q4

REPORT INFORMATION
  Report Type: Spontaneous
  Country: GB (occurrence: GB)
  Receive Date: 20251217
  Receipt Date: 20251217
  Transmission Date: 20260118
  Serious: Yes (Hospitalization, Disabling)
  Sender: ROCHE
  Company Number: None

PATIENT
  Sex: Female

DRUGS (4)
  1. ESBRIET [Suspect]
     Active Substance: PIRFENIDONE
     Indication: Idiopathic pulmonary fibrosis
     Route: 048
     Dates: start: 20150513
  2. ESBRIET [Suspect]
     Active Substance: PIRFENIDONE
     Route: 048
  3. CARBOCYSTEINE [Suspect]
     Active Substance: CARBOCYSTEINE
     Indication: Secretion discharge
  4. PREDNISOLONE [Concomitant]
     Active Substance: PREDNISOLONE
     Indication: Idiopathic pulmonary fibrosis
     Route: 048
     Dates: start: 20150513

REACTIONS (17)
  - Lower respiratory tract infection [Recovering/Resolving]
  - Gastrooesophageal reflux disease [Unknown]
  - Abdominal discomfort [Not Recovered/Not Resolved]
  - Dysgeusia [Not Recovered/Not Resolved]
  - Chest pain [Unknown]
  - Decreased appetite [Not Recovered/Not Resolved]
  - Appetite disorder [Unknown]
  - Cough [Unknown]
  - Nausea [Unknown]
  - Dyspnoea [Unknown]
  - Anxiety [Unknown]
  - Secretion discharge [Unknown]
  - Weight decreased [Unknown]
  - Malaise [Unknown]
  - Ill-defined disorder [Unknown]
  - Fatigue [Unknown]
  - Osteoporosis [Unknown]

NARRATIVE: CASE EVENT DATE: 20161120
